FAERS Safety Report 11881655 (Version 2)
Quarter: 2016Q1

REPORT INFORMATION
  Report Type: Report from Study
  Country: US (occurrence: US)
  Receive Date: 20151231
  Receipt Date: 20160108
  Transmission Date: 20160526
  Serious: No
  Sender: FDA-Public Use
  Company Number: US-PFIZER INC-2015436446

PATIENT
  Age: 25 Year
  Sex: Female

DRUGS (3)
  1. IBUPROFEN. [Suspect]
     Active Substance: IBUPROFEN
     Dosage: 200 MG, UNK
  2. ADVIL [Suspect]
     Active Substance: IBUPROFEN
     Dosage: 600 MG, (EXCEEDING 6 TABLETS IN A 24HR PERIOD)
  3. ADVIL [Suspect]
     Active Substance: IBUPROFEN
     Dosage: 200 MG, UNK

REACTIONS (3)
  - Abdominal discomfort [Unknown]
  - Overdose [Unknown]
  - Incorrect drug administration duration [Unknown]
